FAERS Safety Report 23735283 (Version 1)
Quarter: 2024Q2

REPORT INFORMATION
  Report Type: Spontaneous
  Country: JP (occurrence: JP)
  Receive Date: 20240412
  Receipt Date: 20240412
  Transmission Date: 20240716
  Serious: Yes (Hospitalization)
  Sender: FDA-Public Use
  Company Number: JP-VANTIVE-2024VAN016035

PATIENT
  Age: 50 Year
  Sex: Male

DRUGS (3)
  1. REGUNEAL LCA [Suspect]
     Active Substance: CALCIUM CHLORIDE\DEXTROSE MONOHYDRATE\HYDROCHLORIC ACID\MAGNESIUM CHLORIDE\SODIUM BICARBONATE\SODIUM
     Indication: Peritoneal dialysis
     Dosage: 2500ML
     Route: 033
     Dates: start: 20231005
  2. REGUNEAL LCA [Suspect]
     Active Substance: CALCIUM CHLORIDE\DEXTROSE MONOHYDRATE\HYDROCHLORIC ACID\MAGNESIUM CHLORIDE\SODIUM BICARBONATE\SODIUM
     Indication: Peritoneal dialysis
     Dosage: 5000ML
     Route: 033
     Dates: start: 20231005
  3. REGUNEAL LCA [Suspect]
     Active Substance: CALCIUM CHLORIDE\DEXTROSE MONOHYDRATE\HYDROCHLORIC ACID\MAGNESIUM CHLORIDE\SODIUM BICARBONATE\SODIUM
     Dosage: UNK (DOSE INCREASED)
     Route: 033
     Dates: start: 20240401

REACTIONS (3)
  - Hypervolaemia [Recovered/Resolved]
  - Dyspnoea [Recovered/Resolved]
  - Poor personal hygiene [Unknown]

NARRATIVE: CASE EVENT DATE: 20240401
